FAERS Safety Report 7308069-1 (Version None)
Quarter: 2011Q1

REPORT INFORMATION
  Report Type: 
  Country: None (occurrence: None)
  Receive Date: 20110223
  Receipt Date: 20101005
  Transmission Date: 20110831
  Serious: Yes (Hospitalization)
  Sender: FDA-Public Use
  Company Number: US-BAYER-200937772NA

PATIENT
  Sex: Female
  Weight: 104.55 kg

DRUGS (29)
  1. ADVIL LIQUI-GELS [Concomitant]
  2. DIAZEPAM [Concomitant]
  3. ASMANEX TWISTHALER [Concomitant]
     Indication: ASTHMA
     Dosage: UNK UNK, PRN
     Dates: start: 20010101, end: 20030101
  4. ROXICET [Concomitant]
  5. TRIAM [Concomitant]
  6. YAZ [Suspect]
     Indication: CONTRACEPTION
     Route: 048
     Dates: start: 20060501, end: 20061101
  7. YAZ [Suspect]
     Indication: ACNE
  8. CYCLOBENZAPRINE [Concomitant]
     Indication: ANALGESIC THERAPY
     Dosage: 10 MG, UNK
     Dates: start: 20061114
  9. CLONAZEPAM [Concomitant]
  10. SINGULAIR [Concomitant]
     Dosage: UNK
  11. AZITHROMYCIN [Concomitant]
  12. EPIPEN [Concomitant]
  13. ALLER EZE CLEAR [Concomitant]
     Indication: MULTIPLE ALLERGIES
  14. THYROID TAB [Concomitant]
  15. CLAVINEX [Concomitant]
  16. MUPIROCIN [Concomitant]
  17. TOBRADEX [Concomitant]
  18. SIMVASTATIN [Concomitant]
     Indication: BLOOD CHOLESTEROL INCREASED
  19. CEPHALEXIN [Concomitant]
  20. ELESTAT [Concomitant]
  21. HYDROCODONE BITARTRATE [Concomitant]
  22. METRONIDAZOLE [Concomitant]
  23. ANALPRAM [Concomitant]
     Indication: ANXIETY
  24. PHENTERMINE [Concomitant]
     Indication: OBESITY
     Dates: start: 20060201, end: 20060501
  25. ACIPHEX [Concomitant]
  26. ZYRTEC [Concomitant]
  27. YASMIN [Suspect]
     Indication: CONTRACEPTION
     Dosage: 1 TAB/DAY
     Route: 048
  28. AMITRIPTYLINE [Concomitant]
  29. CYMBALTA [Concomitant]

REACTIONS (4)
  - DEEP VEIN THROMBOSIS [None]
  - ARTHRALGIA [None]
  - OEDEMA PERIPHERAL [None]
  - PULMONARY EMBOLISM [None]
